FAERS Safety Report 24105098 (Version 2)
Quarter: 2024Q4

REPORT INFORMATION
  Report Type: Report from Study
  Country: IN (occurrence: IN)
  Receive Date: 20240717
  Receipt Date: 20241011
  Transmission Date: 20250115
  Serious: Yes (Death, Other)
  Sender: ROCHE
  Company Number: IN-ROCHE-3573673

PATIENT
  Age: 70 Year
  Sex: Male

DRUGS (1)
  1. TECENTRIQ [Suspect]
     Active Substance: ATEZOLIZUMAB
     Indication: Hepatocellular carcinoma
     Route: 041
     Dates: start: 20240429

REACTIONS (3)
  - Neoplasm progression [Unknown]
  - Decreased appetite [Unknown]
  - Death [Fatal]

NARRATIVE: CASE EVENT DATE: 20240711
